FAERS Safety Report 5189148-4 (Version None)
Quarter: 2006Q4

REPORT INFORMATION
  Report Type: 
  Country: None (occurrence: None)
  Receive Date: 20061215
  Receipt Date: 20061127
  Transmission Date: 20070319
  Serious: Yes (Hospitalization, Disabling)
  Sender: FDA-Public Use
  Company Number: 2006146771

PATIENT
  Sex: Female

DRUGS (2)
  1. BEXTRA [Suspect]
     Dosage: ORAL
     Route: 048
     Dates: start: 20020701
  2. VIOXX [Suspect]
     Dosage: ORAL
     Route: 048
     Dates: start: 20040701

REACTIONS (1)
  - CEREBROVASCULAR ACCIDENT [None]
